FAERS Safety Report 4405211-7 (Version None)
Quarter: 2004Q3

REPORT INFORMATION
  Report Type: 
  Country: None (occurrence: None)
  Receive Date: 20040722
  Receipt Date: 20040722
  Transmission Date: 20050211
  Serious: Yes (Hospitalization, Other)
  Sender: FDA-Public Use
  Company Number: None

PATIENT
  Age: 54 Year
  Sex: Male
  Weight: 91.2 kg

DRUGS (8)
  1. ANCEF [Suspect]
     Indication: PROPHYLAXIS
     Dosage: 1 GRAM IV Q8 HRS/ ONE DOSE ONLY
     Route: 042
     Dates: start: 20040615
  2. UROKINASE [Concomitant]
  3. SIMVA [Concomitant]
  4. OXYCODONE AND ACETAMINOPHEN [Concomitant]
  5. .. [Concomitant]
  6. LISINOPRIL [Concomitant]
  7. ATENOLOL [Concomitant]
  8. KEPPRA [Concomitant]

REACTIONS (3)
  - BRADYCARDIA [None]
  - HYPERHIDROSIS [None]
  - HYPOTENSION [None]
